FAERS Safety Report 5571886-2 (Version None)
Quarter: 2007Q4

REPORT INFORMATION
  Report Type: 
  Country: None (occurrence: None)
  Receive Date: 20071221
  Receipt Date: 20071213
  Transmission Date: 20080405
  Serious: Yes (Hospitalization)
  Sender: FDA-Public Use
  Company Number: US-BRACCO-BDI-010717

PATIENT
  Age: 50 Year
  Sex: Female

DRUGS (10)
  1. ISOVUE-128 [Suspect]
     Indication: METASTATIC NEOPLASM
     Route: 042
     Dates: start: 20071126, end: 20071126
  2. ISOVUE-128 [Suspect]
     Indication: COMPUTERISED TOMOGRAM
     Route: 042
     Dates: start: 20071126, end: 20071126
  3. BENADRYL [Concomitant]
     Route: 048
     Dates: start: 20071126, end: 20071126
  4. PREDNISONE [Concomitant]
     Route: 048
     Dates: start: 20071126, end: 20071126
  5. TATDZOL [Concomitant]
     Route: 065
  6. BENZOATE [Concomitant]
     Route: 065
  7. PEGFILGRASTIM [Concomitant]
     Route: 065
  8. DEXAMETHASONE TAB [Concomitant]
     Route: 065
  9. DOCETAXEL [Concomitant]
     Route: 065
  10. ZOMETA [Suspect]

REACTIONS (1)
  - RENAL TUBULAR NECROSIS [None]
